FAERS Safety Report 19562627 (Version 1)
Quarter: 2021Q3

REPORT INFORMATION
  Report Type: Report from Study
  Country: US (occurrence: US)
  Receive Date: 20210715
  Receipt Date: 20210715
  Transmission Date: 20211014
  Serious: No
  Sender: FDA-Public Use
  Company Number: US-IGSA-BIG0015181

PATIENT
  Sex: Male
  Weight: 86.2 kg

DRUGS (2)
  1. GAMUNEX?C [Suspect]
     Active Substance: HUMAN IMMUNOGLOBULIN G
     Indication: NEUROPATHY PERIPHERAL
     Dosage: UNK, UNKNOWN
     Route: 042
     Dates: start: 202101
  2. GAMUNEX?C [Suspect]
     Active Substance: HUMAN IMMUNOGLOBULIN G
     Indication: OFF LABEL USE

REACTIONS (2)
  - Rash [Recovered/Resolved]
  - Blister [Recovered/Resolved]
